FAERS Safety Report 20592254 (Version 2)
Quarter: 2022Q1

REPORT INFORMATION
  Report Type: Spontaneous
  Country: HR (occurrence: HR)
  Receive Date: 20220314
  Receipt Date: 20220329
  Transmission Date: 20220423
  Serious: Yes (Other)
  Sender: FDA-Public Use
  Company Number: HR-MALLINCKRODT-T202201048

PATIENT
  Age: 13 Year
  Sex: Female

DRUGS (2)
  1. UVADEX [Suspect]
     Active Substance: METHOXSALEN
     Indication: Product used for unknown indication
     Dosage: UNK, EXTRACORPOREAL
     Route: 050
  2. ANTICOAGULANT CITRATE DEXTROSE SOLUTION (ACD) NOS [Suspect]
     Active Substance: CITRIC ACID MONOHYDRATE\DEXTROSE\SODIUM CITRATE
     Indication: Anticoagulant therapy
     Dosage: UNK (124-356 ML)
     Route: 065

REACTIONS (2)
  - Citrate toxicity [Recovered/Resolved]
  - Hypocalcaemia [Recovered/Resolved]
